FAERS Safety Report 12447355 (Version 32)
Quarter: 2025Q3

REPORT INFORMATION
  Report Type: Report from Study
  Country: BR (occurrence: BR)
  Receive Date: 20160608
  Receipt Date: 20250923
  Transmission Date: 20251020
  Serious: Yes (Hospitalization, Other)
  Sender: GLAXOSMITHKLINE
  Company Number: BR-GLAXOSMITHKLINE INC.-BR2015GSK073915

PATIENT
  Age: 56 Year
  Sex: Female
  Weight: 72 kg

DRUGS (13)
  1. BELIMUMAB [Suspect]
     Active Substance: BELIMUMAB
     Indication: Systemic lupus erythematosus
  2. BELIMUMAB [Suspect]
     Active Substance: BELIMUMAB
  3. BELIMUMAB [Suspect]
     Active Substance: BELIMUMAB
  4. BELIMUMAB [Suspect]
     Active Substance: BELIMUMAB
     Dosage: 800 MG, Q4W
     Dates: start: 20150608
  5. CHOLECALCIFEROL [Suspect]
     Active Substance: CHOLECALCIFEROL
     Indication: Product used for unknown indication
     Dosage: 5 DF, QD
     Dates: start: 20170221, end: 20170225
  6. AZATHIOPRINE [Concomitant]
     Active Substance: AZATHIOPRINE
     Indication: Product used for unknown indication
  7. NORFLOXACIN [Concomitant]
     Active Substance: NORFLOXACIN
     Indication: Product used for unknown indication
  8. HYDROXYCHLOROQUINE SULFATE [Concomitant]
     Active Substance: HYDROXYCHLOROQUINE SULFATE
     Indication: Product used for unknown indication
  9. METHOTREXATE (METHOTREXATE SODIUM) [Concomitant]
     Active Substance: METHOTREXATE SODIUM
     Indication: Product used for unknown indication
  10. PREDNISONE [Concomitant]
     Active Substance: PREDNISONE
     Indication: Product used for unknown indication
  11. PREDNISONE [Concomitant]
     Active Substance: PREDNISONE
  12. PREDNISONE [Concomitant]
     Active Substance: PREDNISONE
  13. CYCLOPHOSPHAMIDE [Concomitant]
     Active Substance: CYCLOPHOSPHAMIDE
     Indication: Product used for unknown indication

REACTIONS (44)
  - Urinary incontinence [Unknown]
  - Systemic lupus erythematosus [Unknown]
  - Cataract [Recovered/Resolved]
  - Dengue fever [Unknown]
  - Pyelonephritis chronic [Unknown]
  - Immunodeficiency [Not Recovered/Not Resolved]
  - Urinary tract infection [Recovered/Resolved]
  - Pain [Recovering/Resolving]
  - Vein disorder [Unknown]
  - Pain in extremity [Unknown]
  - Pulmonary mass [Unknown]
  - Skin disorder [Recovered/Resolved]
  - Wound [Unknown]
  - Dehydration [Unknown]
  - Cough [Not Recovered/Not Resolved]
  - Nasopharyngitis [Unknown]
  - Nasal neoplasm [Not Recovered/Not Resolved]
  - Herpes virus infection [Unknown]
  - Muscle spasms [Recovered/Resolved]
  - Diarrhoea [Recovered/Resolved]
  - Feeling cold [Recovered/Resolved]
  - Productive cough [Recovered/Resolved]
  - Dysphonia [Not Recovered/Not Resolved]
  - Weight decreased [Unknown]
  - Blood uric acid increased [Unknown]
  - Somnolence [Unknown]
  - Vomiting [Unknown]
  - Pyrexia [Recovered/Resolved]
  - Renal pain [Unknown]
  - Arthralgia [Unknown]
  - Swelling [Unknown]
  - Erythema [Recovered/Resolved]
  - Malaise [Unknown]
  - Skin discolouration [Unknown]
  - Fluid retention [Not Recovered/Not Resolved]
  - Varicose vein [Not Recovered/Not Resolved]
  - Petechiae [Recovered/Resolved]
  - Memory impairment [Unknown]
  - Platelet count decreased [Not Recovered/Not Resolved]
  - Condition aggravated [Unknown]
  - Overdose [Unknown]
  - Circumstance or information capable of leading to medication error [Unknown]
  - Inappropriate schedule of product administration [Unknown]
  - Product dose omission issue [Unknown]

NARRATIVE: CASE EVENT DATE: 20190301
